FAERS Safety Report 8612731-8 (Version None)
Quarter: 2012Q3

REPORT INFORMATION
  Report Type: 
  Country: None (occurrence: None)
  Receive Date: 20120822
  Receipt Date: 20110822
  Transmission Date: 20120928
  Serious: No
  Sender: FDA-Public Use
  Company Number: US-ASTRAZENECA-2011SE50554

PATIENT
  Sex: Female

DRUGS (11)
  1. DITROPAN [Concomitant]
     Route: 048
     Dates: start: 20110624, end: 20110624
  2. LEXAPRO [Concomitant]
     Route: 048
     Dates: start: 20110503, end: 20110503
  3. NEXIUM [Suspect]
     Route: 048
     Dates: start: 20110525, end: 20110525
  4. MICARDIS [Concomitant]
     Route: 048
     Dates: start: 20110503, end: 20110503
  5. FIORICET [Concomitant]
     Dosage: 325/50/40 MG, ONE TO TWO TABLETS ORALLY EVERY FOUR TO SIX HOURS, NOT TO EXCEED SIX TAB PER DAY
     Route: 048
     Dates: start: 20110628, end: 20110628
  6. CLONIDINE [Concomitant]
     Route: 048
     Dates: start: 20110503, end: 20110503
  7. ULTRAM [Concomitant]
     Indication: PAIN
     Dosage: ONE TABLET ORALLY EVERY FOUR TO SIX HOURS PRN
     Route: 048
     Dates: start: 20101213, end: 20101213
  8. FERROUS SULFATE TAB [Concomitant]
     Route: 048
     Dates: start: 20110503, end: 20110503
  9. PROAIR HFA [Concomitant]
     Indication: DYSPNOEA
     Dosage: 90 MCG/INH TWO PUFFS INHALED AS NEEDED
     Route: 055
     Dates: start: 20100715, end: 20100715
  10. SYMBICORT [Suspect]
     Dosage: 160/4.5 MCG/INH AEROSOL WITH ADAPTER TWO PUFFS INHALED TWO TIMES A DAY
     Route: 055
     Dates: start: 20100715, end: 20100715
  11. BYSTOLIC [Concomitant]
     Route: 048
     Dates: start: 20110503, end: 20110503

REACTIONS (2)
  - DYSPNOEA [None]
  - PAIN [None]
